FAERS Safety Report 8008400-8 (Version None)
Quarter: 2011Q4

REPORT INFORMATION
  Report Type: 
  Country: None (occurrence: None)
  Receive Date: 20111227
  Receipt Date: 20111215
  Transmission Date: 20120403
  Serious: Yes (Hospitalization)
  Sender: FDA-Public Use
  Company Number: GB-ROCHE-1011351

PATIENT
  Sex: Female
  Weight: 64 kg

DRUGS (8)
  1. CYCLOPHOSPHAMIDE [Suspect]
     Indication: B-CELL LYMPHOMA
     Route: 048
     Dates: start: 20110927
  2. MABTHERA [Suspect]
     Route: 042
     Dates: start: 20111019, end: 20111019
  3. MABTHERA [Suspect]
     Indication: B-CELL LYMPHOMA
     Route: 042
     Dates: start: 20110927
  4. FLUDARABINE PHOSPHATE [Suspect]
     Indication: B-CELL LYMPHOMA
     Route: 048
     Dates: start: 20110927
  5. FLUDARABINE PHOSPHATE [Suspect]
     Route: 048
     Dates: start: 20111019, end: 20111021
  6. MOVIPREP [Concomitant]
     Indication: CONSTIPATION
     Route: 048
     Dates: start: 20111028
  7. CYCLOPHOSPHAMIDE [Suspect]
     Route: 048
     Dates: start: 20111019, end: 20111021
  8. ACETAMINOPHEN [Concomitant]
     Route: 048
     Dates: start: 20111028

REACTIONS (2)
  - PERIPHERAL SENSORIMOTOR NEUROPATHY [None]
  - MALAISE [None]
